FAERS Safety Report 8847421 (Version 1)
Quarter: 2012Q4

REPORT INFORMATION
  Report Type: 
  Country: AU (occurrence: AU)
  Receive Date: 20121018
  Receipt Date: 20121018
  Transmission Date: 20130627
  Serious: Yes (Death, Other)
  Sender: FDA-Public Use
  Company Number: AU-ROXANE LABORATORIES, INC.-2012-RO-01997RO

PATIENT
  Age: 14 Year
  Sex: Male

DRUGS (5)
  1. DEXAMETHASONE [Suspect]
     Dates: start: 200910
  2. BEVACIZUMAB [Suspect]
     Indication: GLIOBLASTOMA
     Dates: start: 201004, end: 201007
  3. TEMOZOLOMIDE [Suspect]
     Indication: GLIOBLASTOMA
  4. PROCARBAZINE [Suspect]
     Indication: GLIOBLASTOMA
  5. IRINOTECAN [Suspect]
     Indication: GLIOBLASTOMA
     Dates: start: 201004, end: 201007

REACTIONS (4)
  - Death [Fatal]
  - Skin striae [Unknown]
  - Skin ulcer [Unknown]
  - Abdominal wound dehiscence [Unknown]
